FAERS Safety Report 7419782-X (Version None)
Quarter: 2011Q2

REPORT INFORMATION
  Report Type: 
  Country: None (occurrence: None)
  Receive Date: 20110413
  Receipt Date: 20110413
  Transmission Date: 20111010
  Serious: Yes (Hospitalization)
  Sender: FDA-Public Use
  Company Number: None

PATIENT
  Age: 7 Year
  Sex: Male
  Weight: 24.7664 kg

DRUGS (1)
  1. CONCERTA [Suspect]
     Indication: ATTENTION DEFICIT/HYPERACTIVITY DISORDER
     Dosage: 36 MG ONE PER DAY PO
     Route: 048
     Dates: start: 20110314, end: 20110411

REACTIONS (4)
  - TIC [None]
  - EXCESSIVE EYE BLINKING [None]
  - CONVULSION [None]
  - DYSKINESIA [None]
